FAERS Safety Report 4957918-0 (Version None)
Quarter: 2006Q1

REPORT INFORMATION
  Report Type: 
  Country: None (occurrence: None)
  Receive Date: 20060330
  Receipt Date: 20060323
  Transmission Date: 20060701
  Serious: Yes (Death)
  Sender: FDA-Public Use
  Company Number: US-AMGEN-US173830

PATIENT
  Sex: Male
  Weight: 96.2 kg

DRUGS (6)
  1. PROCRIT [Suspect]
     Indication: ANAEMIA OF MALIGNANT DISEASE
  2. MINOCYCLINE HCL [Concomitant]
  3. POTASSIUM [Concomitant]
  4. ATROVENT [Concomitant]
     Route: 055
  5. LASIX [Concomitant]
  6. SEREVENT [Concomitant]

REACTIONS (1)
  - DEATH [None]
